FAERS Safety Report 19901718 (Version 1)
Quarter: 2021Q3

REPORT INFORMATION
  Report Type: Spontaneous
  Country: US (occurrence: US)
  Receive Date: 20210930
  Receipt Date: 20210930
  Transmission Date: 20211014
  Serious: Yes (Death, Other)
  Sender: FDA-Public Use
  Company Number: US-SA-2021SA322511

PATIENT

DRUGS (1)
  1. ZANTAC [Suspect]
     Active Substance: RANITIDINE HYDROCHLORIDE
     Dosage: UNK
     Dates: start: 200801, end: 201212

REACTIONS (3)
  - Oesophageal carcinoma [Unknown]
  - Throat cancer [Unknown]
  - Nasal cavity cancer [Fatal]

NARRATIVE: CASE EVENT DATE: 20110110
